FAERS Safety Report 16049897 (Version 1)
Quarter: 2019Q1

REPORT INFORMATION
  Report Type: Spontaneous
  Country: US (occurrence: US)
  Receive Date: 20190308
  Receipt Date: 20190308
  Transmission Date: 20190418
  Serious: No
  Sender: FDA-Public Use
  Company Number: US-GLAXOSMITHKLINE-US2019041389

PATIENT
  Age: 71 Year
  Sex: Male

DRUGS (3)
  1. ARNUITY ELLIPTA [Suspect]
     Active Substance: FLUTICASONE FUROATE
     Indication: MALAISE
  2. ARNUITY ELLIPTA [Suspect]
     Active Substance: FLUTICASONE FUROATE
     Indication: COUGH
  3. ARNUITY ELLIPTA [Suspect]
     Active Substance: FLUTICASONE FUROATE
     Indication: VIRAL INFECTION
     Dosage: UNK
     Route: 055

REACTIONS (3)
  - Wrong technique in device usage process [Unknown]
  - Off label use [Unknown]
  - Expired product administered [Unknown]
